FAERS Safety Report 12001579 (Version 1)
Quarter: 2016Q1

REPORT INFORMATION
  Report Type: Spontaneous
  Country: US (occurrence: US)
  Receive Date: 20160204
  Receipt Date: 20160204
  Transmission Date: 20160526
  Serious: No
  Sender: FDA-Public Use
  Company Number: US-PERRIGO-15US000467

PATIENT
  Age: 63 Year
  Sex: Male
  Weight: 95.24 kg

DRUGS (1)
  1. IBUPROFEN. [Suspect]
     Active Substance: IBUPROFEN
     Indication: PAIN
     Dosage: 800 MG, EVERY 8 HOURS
     Route: 048
     Dates: start: 20141225

REACTIONS (3)
  - Vision blurred [Unknown]
  - Incorrect dose administered [Unknown]
  - Incorrect drug administration duration [Unknown]

NARRATIVE: CASE EVENT DATE: 20141225
